FAERS Safety Report 4827859-8 (Version None)
Quarter: 2005Q4

REPORT INFORMATION
  Report Type: 
  Country: None (occurrence: None)
  Receive Date: 20051114
  Receipt Date: 20051114
  Transmission Date: 20060501
  Serious: Yes (Life-Threatening, Hospitalization)
  Sender: FDA-Public Use
  Company Number: None

PATIENT
  Age: 24 Year
  Sex: Female
  Weight: 56.246 kg

DRUGS (1)
  1. ORTHO EVRA [Suspect]
     Indication: CONTRACEPTION
     Dosage: ONE PATCH   WEEKLY   TRANSDERMA
     Route: 062
     Dates: start: 20030101, end: 20030615

REACTIONS (4)
  - APHASIA [None]
  - EMBOLIC STROKE [None]
  - HEMIPLEGIA [None]
  - SIMPLE PARTIAL SEIZURES [None]
